FAERS Safety Report 7943024-X (Version None)
Quarter: 2011Q4

REPORT INFORMATION
  Report Type: 
  Country: None (occurrence: None)
  Receive Date: 20111128
  Receipt Date: 20111121
  Transmission Date: 20120403
  Serious: Yes (Other)
  Sender: FDA-Public Use
  Company Number: US-AMGEN-USASP2011061538

PATIENT
  Age: 44 Year
  Sex: Female

DRUGS (1)
  1. ENBREL [Suspect]
     Indication: RHEUMATOID ARTHRITIS
     Dosage: 50 MG, QWK
     Dates: start: 20040101

REACTIONS (8)
  - BLOOD FOLLICLE STIMULATING HORMONE INCREASED [None]
  - ASPARTATE AMINOTRANSFERASE INCREASED [None]
  - MENOPAUSAL SYMPTOMS [None]
  - HOT FLUSH [None]
  - PANIC ATTACK [None]
  - BURNING SENSATION [None]
  - ERYTHEMA [None]
  - INJECTION SITE PAIN [None]
